FAERS Safety Report 9503562 (Version 2)
Quarter: 2013Q4

REPORT INFORMATION
  Report Type: Report from Study
  Country: JP (occurrence: JP)
  Receive Date: 20130906
  Receipt Date: 20131218
  Transmission Date: 20140711
  Serious: Yes (Death)
  Sender: FDA-Public Use
  Company Number: JP-UCBSA-096382

PATIENT
  Age: 32 Year
  Sex: Male
  Weight: 100 kg

DRUGS (10)
  1. E KEPPRA [Suspect]
     Indication: COMPLEX PARTIAL SEIZURES
     Route: 048
     Dates: start: 20120730, end: 20121018
  2. BUP-4 [Concomitant]
     Dosage: DAILY DOSE: 20 MG
     Route: 048
     Dates: start: 20120803, end: 20121018
  3. TEMODAL [Concomitant]
     Dosage: DAILY DOSE: 160 MG
     Route: 048
     Dates: end: 20121015
  4. PREDONINE [Concomitant]
     Dosage: DAILY DOSE: 10 MG
     Route: 048
     Dates: end: 20121018
  5. TEGRETOL [Concomitant]
     Dosage: DAILY DOSE: 400 MG
     Route: 048
     Dates: end: 20120710
  6. TEGRETOL [Concomitant]
     Dosage: DAILY DOSE: 600 MG
     Route: 048
     Dates: end: 20121018
  7. LOXONIN [Concomitant]
     Dosage: DAILY DOSE: 60 MG
     Route: 048
     Dates: end: 20120921
  8. MUCOSTA [Concomitant]
     Dosage: DAILY DOSE: 100 MG
     Route: 048
     Dates: end: 20120921
  9. NAVOBAN [Concomitant]
     Dosage: DAILY DOSE: 5 MG
     Route: 048
     Dates: start: 20120814, end: 20121015
  10. VOLTAREN [Concomitant]
     Dosage: DAILY DOSE: 25 MG
     Route: 048
     Dates: start: 20121014, end: 20121016

REACTIONS (1)
  - Brain neoplasm malignant [Fatal]
